FAERS Safety Report 21682127 (Version 1)
Quarter: 2022Q4

REPORT INFORMATION
  Report Type: Report from Study
  Country: ES (occurrence: ES)
  Receive Date: 20221205
  Receipt Date: 20221205
  Transmission Date: 20230113
  Serious: Yes (Hospitalization)
  Sender: FDA-Public Use
  Company Number: None

PATIENT
  Age: 9 Year
  Sex: Male
  Weight: 42 kg

DRUGS (6)
  1. METHOTREXATE [Suspect]
     Active Substance: METHOTREXATE
     Indication: Acute lymphocytic leukaemia
     Route: 042
     Dates: start: 20210723
  2. IFOSFAMIDE [Suspect]
     Active Substance: IFOSFAMIDE
     Indication: Lymphocytic leukaemia
     Dosage: UNK
     Route: 042
     Dates: start: 20210723
  3. DAUNORUBICIN HYDROCHLORIDE [Suspect]
     Active Substance: DAUNORUBICIN HYDROCHLORIDE
     Indication: Lymphocytic leukaemia
     Dosage: UNK
     Route: 042
     Dates: start: 20210723
  4. VINDESINE [Suspect]
     Active Substance: VINDESINE
     Indication: Lymphocytic leukaemia
     Dosage: UNK
     Route: 042
     Dates: start: 20210723
  5. DEXAMETHASONE [Suspect]
     Active Substance: DEXAMETHASONE
     Indication: Lymphocytic leukaemia
     Route: 042
     Dates: start: 20210723
  6. ASPARAGINASE [Suspect]
     Active Substance: ASPARAGINASE
     Indication: Lymphocytic leukaemia
     Route: 042
     Dates: start: 20210723

REACTIONS (2)
  - Bone marrow failure [Recovering/Resolving]
  - Pantoea agglomerans infection [Recovered/Resolved]

NARRATIVE: CASE EVENT DATE: 20210802
